FAERS Safety Report 8548489-0 (Version None)
Quarter: 2012Q3

REPORT INFORMATION
  Report Type: 
  Country: None (occurrence: None)
  Receive Date: 20120719
  Receipt Date: 20120719
  Transmission Date: 20120928
  Serious: Yes (Hospitalization)
  Sender: FDA-Public Use
  Company Number: None

PATIENT
  Sex: Male
  Weight: 92.5338 kg

DRUGS (1)
  1. NEOMYCIN + POLYMYXIN B SULFATES + DEXAMETHASONE [Suspect]
     Indication: EYE HAEMORRHAGE
     Dosage: 4 DROPS DAILY DIRECTLY TO EYE
     Dates: start: 20110315, end: 20120408

REACTIONS (8)
  - DYSGEUSIA [None]
  - EYE INFLAMMATION [None]
  - EYE IRRITATION [None]
  - EPISTAXIS [None]
  - MIGRAINE [None]
  - INJURY [None]
  - EYE PRURITUS [None]
  - LACRIMAL HAEMORRHAGE [None]
